FAERS Safety Report 6547352-4 (Version None)
Quarter: 2010Q1

REPORT INFORMATION
  Report Type: 
  Country: None (occurrence: None)
  Receive Date: 20100122
  Receipt Date: 20100112
  Transmission Date: 20100710
  Serious: Yes (Hospitalization)
  Sender: FDA-Public Use
  Company Number: JP-ROCHE-676899

PATIENT
  Sex: Male
  Weight: 39 kg

DRUGS (12)
  1. ACTEMRA [Suspect]
     Indication: RHEUMATOID ARTHRITIS
     Route: 041
     Dates: start: 20091127, end: 20091127
  2. PREDONINE [Suspect]
     Indication: RHEUMATOID ARTHRITIS
     Route: 048
  3. PROGRAF [Concomitant]
     Route: 048
  4. CELCOX [Concomitant]
     Route: 048
  5. ADALAT CC [Concomitant]
     Dosage: DOSE FORM: SUSTAINED RELEASE TABLET
     Route: 048
  6. ACTONEL [Concomitant]
     Route: 048
  7. GASTER D [Concomitant]
     Route: 048
  8. PAXIL [Concomitant]
     Dosage: PAXIL(PAROXETINE HYDROCHLORIDE HYDRATE)
     Route: 048
  9. BERIZYM [Concomitant]
     Dosage: DOSE FORM: ORAL FORMULATION (NOT OTHERWISE SPECIFIED)
     Route: 048
  10. BAKTAR [Concomitant]
     Dosage: BAKTAR(SULFAMETHOXAZOLE_TRIMETHOPRIM)
     Route: 048
  11. ISCOTIN [Concomitant]
     Route: 048
  12. ALOSENN [Concomitant]
     Route: 048

REACTIONS (1)
  - LARGE INTESTINAL HAEMORRHAGE [None]
